FAERS Safety Report 6062642-X (Version None)
Quarter: 2009Q1

REPORT INFORMATION
  Report Type: 
  Country: None (occurrence: None)
  Receive Date: 20090203
  Receipt Date: 20090129
  Transmission Date: 20090719
  Serious: Yes (Hospitalization)
  Sender: FDA-Public Use
  Company Number: FR-WYE-G03020909

PATIENT
  Sex: Female

DRUGS (8)
  1. TAZOCILLINE [Suspect]
     Indication: SEPSIS
     Route: 042
     Dates: start: 20080921, end: 20081010
  2. TAZOCILLINE [Suspect]
     Route: 042
     Dates: start: 20081031, end: 20081106
  3. TAZOCILLINE [Suspect]
     Route: 042
     Dates: start: 20081110, end: 20081111
  4. CYTARABINE [Concomitant]
     Indication: ACUTE MYELOID LEUKAEMIA
     Dosage: UNKNOWN
     Dates: start: 20081029
  5. DAUNORUBICIN HCL [Concomitant]
     Indication: ACUTE MYELOID LEUKAEMIA
     Dosage: UNKNOWN
     Dates: start: 20081029, end: 20081101
  6. AMBISOME [Suspect]
     Indication: ANTIFUNGAL PROPHYLAXIS
     Dosage: 200 MG TOTAL DAILY
     Route: 042
     Dates: start: 20080930, end: 20081012
  7. AMBISOME [Suspect]
     Route: 042
     Dates: start: 20081105, end: 20081110
  8. AMBISOME [Suspect]
     Dosage: UNKNOWN
     Route: 042
     Dates: start: 20081110

REACTIONS (8)
  - ERYTHEMA [None]
  - HEADACHE [None]
  - HYPERSENSITIVITY [None]
  - NAUSEA [None]
  - PRURITUS [None]
  - RASH GENERALISED [None]
  - SKIN REACTION [None]
  - SUFFOCATION FEELING [None]
